FAERS Safety Report 13008626 (Version 1)
Quarter: 2016Q4

REPORT INFORMATION
  Report Type: Spontaneous
  Country: US (occurrence: US)
  Receive Date: 20161208
  Receipt Date: 20161208
  Transmission Date: 20170207
  Serious: No
  Sender: FDA-Public Use
  Company Number: US-PFIZER INC-2016558961

PATIENT
  Age: 16 Year
  Sex: Male
  Weight: 77.11 kg

DRUGS (6)
  1. IRON [Concomitant]
     Active Substance: IRON
     Dosage: IN THE MORNING
  2. SYNTHROID [Concomitant]
     Active Substance: LEVOTHYROXINE SODIUM
     Dosage: 50 MCG, ONCE IN THE MORNING
  3. VITAMIN C [Concomitant]
     Active Substance: ASCORBIC ACID
     Dosage: TAKE ALONG WITH IRON
  4. PRISTIQ EXTENDED-RELEASE [Suspect]
     Active Substance: DESVENLAFAXINE SUCCINATE
     Indication: DEPRESSION
     Dosage: UNK, 1X/DAY (ONCE A DAY)
  5. BUPROPION HYDROCHLORIDE. [Concomitant]
     Active Substance: BUPROPION HYDROCHLORIDE
     Dosage: 450 MG, IN THE MORNING
  6. ABILIFY [Concomitant]
     Active Substance: ARIPIPRAZOLE
     Dosage: UNK

REACTIONS (3)
  - Product use issue [Unknown]
  - Insomnia [Unknown]
  - Decreased appetite [Unknown]
